FAERS Safety Report 7471098-1 (Version None)
Quarter: 2011Q2

REPORT INFORMATION
  Report Type: 
  Country: None (occurrence: None)
  Receive Date: 20110510
  Receipt Date: 20110428
  Transmission Date: 20111010
  Serious: Yes (Hospitalization, Other)
  Sender: FDA-Public Use
  Company Number: BR-BAYER-200823304LA

PATIENT
  Age: 47 Year
  Sex: Female

DRUGS (41)
  1. UNKNOWN DRUG [Concomitant]
     Indication: CARDIAC STRESS TEST
     Route: 065
     Dates: start: 20081001, end: 20081001
  2. PRISTIQ [Concomitant]
     Indication: DEPRESSION
     Dosage: 1 DF, QD
     Route: 048
     Dates: start: 20100401, end: 20110401
  3. CORTICOSTEROID NOS [Concomitant]
     Indication: HYPOAESTHESIA
  4. FLUNITRAZEPAM [Concomitant]
     Indication: INSOMNIA
     Route: 048
  5. METHOTREXATE [Concomitant]
     Indication: ARTHRITIS
  6. ASPIRIN [Concomitant]
     Indication: ANTIPLATELET THERAPY
     Dosage: 2 TAB A DAY
     Route: 048
     Dates: start: 20081001
  7. DORIL [Concomitant]
     Indication: HEADACHE
     Dosage: 1 DF, PRN
     Route: 048
  8. DORFLEX [Concomitant]
     Indication: MYALGIA
     Dosage: 1 DF, PRN
     Route: 048
     Dates: start: 19810101
  9. ACETAMINOPHEN [Concomitant]
     Indication: PAIN
     Dosage: 1 DF, PRN
     Route: 048
     Dates: start: 20050101
  10. GALENIC FORMULATION [Concomitant]
     Indication: ARTHRITIS
     Dosage: 1 DF, QD
     Route: 048
     Dates: start: 20100401
  11. UNKNOWN DRUG [Concomitant]
     Indication: ANTICOAGULANT THERAPY
     Route: 065
     Dates: start: 20081001, end: 20081001
  12. NIMESULIDE [Concomitant]
     Indication: ARTHRITIS
  13. CORTICOSTEROID NOS [Concomitant]
     Indication: PAIN
     Dosage: 2 DF, QD
     Route: 048
     Dates: start: 20000101, end: 20020101
  14. SIRDALUD [Concomitant]
     Indication: RESTLESS LEGS SYNDROME
     Route: 048
  15. OMEPRAZOLE [Concomitant]
     Indication: PROPHYLAXIS
     Dosage: 2 DF, QD
     Route: 048
     Dates: start: 20000101
  16. GALENIC FORMULATION [Concomitant]
     Indication: OSTEOARTHRITIS
     Route: 048
     Dates: start: 19980101, end: 20100301
  17. GALENIC FORMULATION [Concomitant]
     Indication: MYALGIA
  18. UNCODEABLE ^UNCLASSIFIABLE^ [Concomitant]
     Dosage: 1 DF, BID
     Route: 048
     Dates: start: 19980101, end: 20100315
  19. UNKNOWN DRUG [Concomitant]
     Indication: DEPRESSION
     Dosage: 1 DF, QD
     Route: 048
     Dates: start: 20110401
  20. CAPTOPRIL [Concomitant]
     Indication: HYPERTENSION
     Dosage: 1 DF, QD
     Route: 048
     Dates: start: 20070101, end: 20080101
  21. SIMVASTATIN [Concomitant]
     Indication: HYPERCHOLESTEROLAEMIA
     Dosage: UNK
     Dates: start: 20081001
  22. PULSE THERAPY [Concomitant]
     Indication: PAIN
     Dosage: UNK
     Route: 042
     Dates: start: 20000101
  23. PULSE THERAPY [Concomitant]
     Indication: HYPOAESTHESIA
  24. BETAFERON [Suspect]
     Indication: RELAPSING-REMITTING MULTIPLE SCLEROSIS
     Dosage: BETAJECT
     Route: 058
     Dates: start: 20080617, end: 20081020
  25. PAROXETINE HCL [Concomitant]
     Indication: ANXIETY
     Route: 048
  26. PANTOPRAZOLE [Concomitant]
     Indication: PROPHYLAXIS
     Route: 048
     Dates: start: 20080101
  27. ALPRAZOLAM [Concomitant]
     Indication: ANXIETY
     Dosage: 1 DF, QD (2MG)
     Route: 048
     Dates: start: 20070101
  28. ALPRAZOLAM [Concomitant]
     Indication: SLEEP DISORDER
     Route: 048
     Dates: start: 20080101, end: 20100301
  29. ALPRAZOLAM [Concomitant]
     Dosage: 2.5 TABLETS A DAY WHEN NERVOUS
  30. NIMESULIDE [Concomitant]
     Indication: OSTEOARTHRITIS
  31. BETAFERON [Suspect]
     Dosage: BETAJECT
     Route: 058
     Dates: start: 20081201, end: 20090901
  32. AMANTADINE HCL [Concomitant]
     Indication: FATIGUE
     Route: 048
     Dates: start: 20080101
  33. METHOTREXATE [Concomitant]
     Indication: OSTEOARTHRITIS
     Route: 048
     Dates: start: 19980101
  34. UNKNOWN DRUG [Concomitant]
     Indication: CARDIAC DISORDER
     Route: 065
  35. ALPRAZOLAM [Concomitant]
     Dosage: 1/2 TAB IN THE MORNING, 1/2 TAB IN THE AFTERNOON AND 1 TAB AT NIGHT
     Route: 048
     Dates: start: 20100301
  36. HIRUDOID [Concomitant]
     Indication: INFECTION PROPHYLAXIS
     Dosage: UNK
     Route: 061
     Dates: start: 20080101
  37. NIMESULIDE [Concomitant]
     Indication: MYALGIA
     Dosage: 1 DF, QD
     Dates: start: 20101101
  38. SIMVASTATIN [Concomitant]
     Dosage: 1 DF, QD
     Dates: start: 20101001
  39. ATENOLOL [Concomitant]
     Indication: HYPERTENSION
     Dosage: 1 DF, QD
     Route: 048
     Dates: start: 20070101, end: 20080101
  40. BETAFERON [Suspect]
     Dosage: BETAJECT
     Route: 058
     Dates: start: 20090907
  41. VITERGAN MASTER [Concomitant]
     Indication: SUPPLEMENTATION THERAPY
     Dosage: 1 DF, QD
     Route: 048
     Dates: start: 20090101

REACTIONS (41)
  - DIZZINESS [None]
  - DEPRESSED MOOD [None]
  - PANCREATIC DISORDER [None]
  - EXOSTOSIS [None]
  - SYNCOPE [None]
  - MULTIPLE SCLEROSIS RELAPSE [None]
  - VOMITING [None]
  - WEIGHT DECREASED [None]
  - MOBILITY DECREASED [None]
  - MYOCARDIAL INFARCTION [None]
  - OVERWEIGHT [None]
  - ABDOMINAL PAIN [None]
  - DYSKINESIA [None]
  - HYPERAESTHESIA [None]
  - PAIN IN EXTREMITY [None]
  - HEADACHE [None]
  - ARTHRALGIA [None]
  - PARAESTHESIA [None]
  - SENSATION OF HEAVINESS [None]
  - BACK PAIN [None]
  - NEUROPATHY PERIPHERAL [None]
  - BLOOD PRESSURE INCREASED [None]
  - MUSCULOSKELETAL STIFFNESS [None]
  - OROMANDIBULAR DYSTONIA [None]
  - ARRHYTHMIA [None]
  - CARDIAC FAILURE [None]
  - FATIGUE [None]
  - CHEST PAIN [None]
  - DYSPNOEA [None]
  - INJECTION SITE ERYTHEMA [None]
  - INJECTION SITE ULCER [None]
  - MALNUTRITION [None]
  - SILENT MYOCARDIAL INFARCTION [None]
  - HYPOAESTHESIA [None]
  - INFLUENZA [None]
  - PAIN [None]
  - MUSCLE TIGHTNESS [None]
  - INJECTION SITE MASS [None]
  - VIRAL INFECTION [None]
  - DIARRHOEA [None]
  - MEMORY IMPAIRMENT [None]
